FAERS Safety Report 9120033 (Version 2)
Quarter: 2013Q2

REPORT INFORMATION
  Report Type: Spontaneous
  Country: US (occurrence: US)
  Receive Date: 20130226
  Receipt Date: 20130425
  Transmission Date: 20140414
  Serious: Yes (Other)
  Sender: FDA-Public Use
  Company Number: US-THROMBOGENICS INC-JET-2013-009

PATIENT
  Sex: 0

DRUGS (3)
  1. JETREA [Suspect]
     Indication: PRODUCT USED FOR UNKNOWN INDICATION
     Dosage: 0.125 MG, ONE TIME DOSE
     Route: 031
     Dates: start: 20130207, end: 20130207
  2. ALPHAGAN [Concomitant]
     Dosage: UNK, Q4H
  3. ALPHAGAN [Concomitant]
     Dosage: UNK, Q8H

REACTIONS (7)
  - Visual acuity reduced [Recovered/Resolved]
  - Pupillary reflex impaired [Recovered/Resolved]
  - Visual field defect [Recovered/Resolved]
  - Optic neuropathy [Recovered/Resolved]
  - Vitreous floaters [Recovered/Resolved]
  - Vision blurred [Recovered/Resolved]
  - Visual field defect [Recovered/Resolved]
